FAERS Safety Report 13604613 (Version 1)
Quarter: 2017Q2

REPORT INFORMATION
  Report Type: Spontaneous
  Country: US (occurrence: US)
  Receive Date: 20170602
  Receipt Date: 20170602
  Transmission Date: 20170830
  Serious: No
  Sender: FDA-Public Use
  Company Number: US-NOVEN PHARMACEUTICALS, INC.-US2016001486

PATIENT

DRUGS (5)
  1. CITRULLINE [Concomitant]
     Active Substance: CITRULLINE
     Indication: ANXIETY
  2. DAYTRANA [Suspect]
     Active Substance: METHYLPHENIDATE
     Indication: ATTENTION DEFICIT/HYPERACTIVITY DISORDER
     Dosage: 30 MG, UNKNOWN
     Route: 062
     Dates: end: 2015
  3. DAYTRANA [Suspect]
     Active Substance: METHYLPHENIDATE
     Dosage: 30 MG + HALF OF 10 MG PATCH, UNKNOWN
     Route: 062
     Dates: start: 2015
  4. DAYTRANA [Suspect]
     Active Substance: METHYLPHENIDATE
     Dosage: 40 MG, UNKNOWN
     Route: 062
     Dates: end: 2015
  5. GUANFACINE. [Concomitant]
     Active Substance: GUANFACINE

REACTIONS (8)
  - Wrong technique in product usage process [Recovered/Resolved]
  - Drug prescribing error [Unknown]
  - Blood glucose decreased [Unknown]
  - Decreased appetite [Recovered/Resolved]
  - Drug effect increased [Unknown]
  - Off label use [Unknown]
  - Prescribed overdose [Recovered/Resolved]
  - Drug effect decreased [Unknown]

NARRATIVE: CASE EVENT DATE: 2015
